FAERS Safety Report 7210427-0 (Version None)
Quarter: 2011Q1

REPORT INFORMATION
  Report Type: 
  Country: None (occurrence: None)
  Receive Date: 20110103
  Receipt Date: 20110103
  Transmission Date: 20110831
  Serious: Yes (Other)
  Sender: FDA-Public Use
  Company Number: None

PATIENT
  Age: 41 Year
  Sex: Female

DRUGS (2)
  1. CREST PRO-HEALTH TOOTHPASTE CLEAN MINT PROCTER AND GAMBLE [Suspect]
     Indication: DENTAL CARE
     Dosage: 1 INCH STRIP 2 TIMES A DAY DENTAL
     Route: 004
     Dates: start: 20100910, end: 20101223
  2. CREST PRO-HEALTH MULTI-PROTECTION MOUTH WASH PROCTER AND GAMBLE [Suspect]
     Indication: DENTAL CARE
     Dosage: 20 ML -4 TEASPOONS- 2 TIMES A DAY DENTAL
     Route: 004
     Dates: start: 20100910, end: 20101223

REACTIONS (2)
  - STOMATITIS [None]
  - TOOTH DISCOLOURATION [None]
